FAERS Safety Report 5903860-8 (Version None)
Quarter: 2008Q3

REPORT INFORMATION
  Report Type: 
  Country: None (occurrence: None)
  Receive Date: 20080930
  Receipt Date: 20080918
  Transmission Date: 20090109
  Serious: Yes (Hospitalization, Other)
  Sender: FDA-Public Use
  Company Number: US-ELI_LILLY_AND_COMPANY-US200809004352

PATIENT
  Sex: Male

DRUGS (7)
  1. FORTEO [Suspect]
     Dosage: UNK, UNK
     Dates: end: 20070101
  2. FORTEO [Suspect]
  3. SIMVASTATIN [Concomitant]
  4. LAMICTAL [Concomitant]
  5. WARFARIN SODIUM [Concomitant]
  6. PROPRANOLOL [Concomitant]
  7. NORVASC [Concomitant]

REACTIONS (4)
  - DIZZINESS [None]
  - FALL [None]
  - HIP FRACTURE [None]
  - UPPER LIMB FRACTURE [None]
